FAERS Safety Report 6318632-2 (Version None)
Quarter: 2009Q3

REPORT INFORMATION
  Report Type: 
  Country: None (occurrence: None)
  Receive Date: 20090821
  Receipt Date: 20090820
  Transmission Date: 20100115
  Serious: Yes (Hospitalization)
  Sender: FDA-Public Use
  Company Number: GB-DENTSPLY-2009-0063-EUR

PATIENT
  Age: 39 Year
  Sex: Female
  Weight: 68.2 kg

DRUGS (8)
  1. XYLOCAINE [Suspect]
     Dates: start: 20090622, end: 20090622
  2. COCAINE [Suspect]
     Route: 061
     Dates: start: 20090622, end: 20090622
  3. DEXAMETHASONE [Concomitant]
     Indication: PREOPERATIVE CARE
  4. FENTANYL [Concomitant]
     Indication: PREOPERATIVE CARE
  5. MIDAZOLAM HCL [Concomitant]
     Indication: PREOPERATIVE CARE
  6. ONDANSETRON [Concomitant]
     Indication: PREOPERATIVE CARE
  7. ACETAMINOPHEN [Concomitant]
     Indication: PREOPERATIVE CARE
  8. PROPOFOL [Concomitant]
     Indication: PREOPERATIVE CARE

REACTIONS (3)
  - ELECTROCARDIOGRAM CHANGE [None]
  - ELECTROCARDIOGRAM ST SEGMENT DEPRESSION [None]
  - SINUS TACHYCARDIA [None]
